FAERS Safety Report 7304893-X (Version None)
Quarter: 2011Q1

REPORT INFORMATION
  Report Type: 
  Country: None (occurrence: None)
  Receive Date: 20110222
  Receipt Date: 20110217
  Transmission Date: 20110831
  Serious: Yes (Other)
  Sender: FDA-Public Use
  Company Number: BR-ELI_LILLY_AND_COMPANY-BR201102004973

PATIENT
  Sex: Female
  Weight: 61.5 kg

DRUGS (7)
  1. DIOVAN HCT [Concomitant]
     Indication: BLOOD PRESSURE ABNORMAL
     Dosage: 160 MG, DAILY (1/D)
     Route: 065
  2. BYETTA [Suspect]
     Indication: DIABETES MELLITUS
     Dosage: UNK, UNKNOWN
     Route: 065
     Dates: start: 20100501
  3. PRANDIN [Concomitant]
     Indication: DIABETES MELLITUS
     Dosage: 2 MG, 2/D
     Route: 065
  4. SOMALGIN [Concomitant]
     Dosage: UNK, UNKNOWN
     Route: 065
  5. LEVEMIR [Concomitant]
     Indication: DIABETES MELLITUS
     Dosage: 40 IU, DAILY (1/D)
     Route: 065
  6. GALVUS MET [Concomitant]
     Indication: DIABETES MELLITUS
     Dosage: UNK, 2/D
     Route: 065
  7. TIBOLONA [Concomitant]
     Dosage: UNK, UNKNOWN
     Route: 065

REACTIONS (2)
  - HYPERTHYROIDISM [None]
  - THYROTOXIC CRISIS [None]
